FAERS Safety Report 15109552 (Version 2)
Quarter: 2023Q1

REPORT INFORMATION
  Report Type: Report from Study
  Country: IT (occurrence: IT)
  Receive Date: 20180705
  Receipt Date: 20230208
  Transmission Date: 20230418
  Serious: Yes (Other)
  Sender: FDA-Public Use
  Company Number: None

PATIENT
  Age: 90 Year
  Sex: Female

DRUGS (4)
  1. LEVOFLOXACIN [Suspect]
     Active Substance: LEVOFLOXACIN
     Indication: Bronchitis
     Dosage: 500 MILLIGRAM DAILY;
     Route: 048
  2. DELAPRIL HYDROCHLORIDE\INDAPAMIDE [Suspect]
     Active Substance: DELAPRIL HYDROCHLORIDE\INDAPAMIDE
     Indication: Hypertension
     Route: 048
     Dates: start: 20180413, end: 20180415
  3. CARTEOL [Concomitant]
     Indication: Product used for unknown indication
     Route: 065
  4. ELOPRAM [Concomitant]
     Indication: Product used for unknown indication
     Route: 065

REACTIONS (1)
  - Macroglossia [Recovering/Resolving]

NARRATIVE: CASE EVENT DATE: 20180420
